FAERS Safety Report 12889996 (Version 1)
Quarter: 2016Q4

REPORT INFORMATION
  Report Type: Spontaneous
  Country: US (occurrence: US)
  Receive Date: 20161027
  Receipt Date: 20161027
  Transmission Date: 20170207
  Serious: Yes (Disabling)
  Sender: FDA-Public Use
  Company Number: US-009507513-1610USA012903

PATIENT
  Sex: Male

DRUGS (1)
  1. KEYTRUDA [Suspect]
     Active Substance: PEMBROLIZUMAB
     Indication: GLIOBLASTOMA

REACTIONS (3)
  - General physical health deterioration [Not Recovered/Not Resolved]
  - Product use issue [Unknown]
  - Bedridden [Not Recovered/Not Resolved]
